APPROVED DRUG PRODUCT: CLARITIN-D
Active Ingredient: LORATADINE; PSEUDOEPHEDRINE SULFATE
Strength: 5MG;120MG
Dosage Form/Route: TABLET, EXTENDED RELEASE;ORAL
Application: N019670 | Product #002
Applicant: BAYER HEALTHCARE LLC
Approved: Nov 27, 2002 | RLD: Yes | RS: Yes | Type: OTC